FAERS Safety Report 13900354 (Version 1)
Quarter: 2017Q3

REPORT INFORMATION
  Report Type: Spontaneous
  Country: US (occurrence: US)
  Receive Date: 20170824
  Receipt Date: 20170824
  Transmission Date: 20171127
  Serious: Yes (Other)
  Sender: FDA-Public Use
  Company Number: PHEH2017US026747

PATIENT
  Sex: Male

DRUGS (4)
  1. AMIODARONE HYDROCHLORIDE. [Suspect]
     Active Substance: AMIODARONE HYDROCHLORIDE
     Indication: ATRIAL FIBRILLATION
     Dosage: 200 MG, UNK
     Route: 048
     Dates: start: 201201
  2. AMIODARONE TEVA [Suspect]
     Active Substance: AMIODARONE
     Indication: ATRIAL FIBRILLATION
     Route: 065
  3. AMIODARONE ZYDUS [Suspect]
     Active Substance: AMIODARONE
     Indication: ATRIAL FIBRILLATION
     Route: 065
  4. AMIODARONE HYDROCHLORIDE. [Suspect]
     Active Substance: AMIODARONE HYDROCHLORIDE
     Indication: ATRIAL FIBRILLATION
     Route: 065

REACTIONS (13)
  - Optic atrophy [Unknown]
  - Eye pain [Unknown]
  - Visual acuity reduced [Unknown]
  - Dizziness [Unknown]
  - Product use in unapproved indication [Unknown]
  - Optic nerve injury [Unknown]
  - Vitreous floaters [Unknown]
  - Macular degeneration [Unknown]
  - Coordination abnormal [Unknown]
  - Blindness [Unknown]
  - Cataract [Unknown]
  - Reading disorder [Unknown]
  - Nausea [Unknown]

NARRATIVE: CASE EVENT DATE: 201309
